FAERS Safety Report 21042518 (Version 1)
Quarter: 2022Q3

REPORT INFORMATION
  Report Type: Spontaneous
  Country: US (occurrence: None)
  Receive Date: 20220702
  Receipt Date: 20220702
  Transmission Date: 20221026
  Serious: Yes (Other)
  Sender: FDA-Public Use
  Company Number: None

PATIENT
  Age: 53 Year
  Sex: Female
  Weight: 89.55 kg

DRUGS (16)
  1. BEBTELOVIMAB [Suspect]
     Active Substance: BEBTELOVIMAB
     Indication: COVID-19
     Dosage: OTHER FREQUENCY : ONCE;?
     Route: 040
     Dates: start: 20220627, end: 20220627
  2. ADVAIR DISKUS [Concomitant]
     Active Substance: FLUTICASONE PROPIONATE\SALMETEROL XINAFOATE
     Dates: start: 20220113
  3. BUPROPION [Concomitant]
     Active Substance: BUPROPION
     Dates: start: 20211109
  4. CETIRIZINE [Concomitant]
     Active Substance: CETIRIZINE HYDROCHLORIDE
  5. CHOLECALCIFEROL [Concomitant]
     Active Substance: CHOLECALCIFEROL
     Dates: start: 20160412
  6. CLONAZEPAM [Concomitant]
     Active Substance: CLONAZEPAM
     Dates: start: 20220414
  7. conjugated estrogens vaginal cream [Concomitant]
     Dates: start: 20210909
  8. DESVENLAFAXINE [Concomitant]
     Active Substance: DESVENLAFAXINE
     Dates: start: 20210825
  9. esterified estrogens-methyltestosterone [Concomitant]
     Dates: start: 20220311
  10. MONTELUKAST [Concomitant]
     Active Substance: MONTELUKAST SODIUM
     Dates: start: 20220113
  11. NAPROXEN [Concomitant]
     Active Substance: NAPROXEN
     Dates: start: 20161004
  12. progesterone micronized [Concomitant]
     Dates: start: 20210909
  13. RIZATRIPTAN [Concomitant]
     Active Substance: RIZATRIPTAN
     Dates: start: 20220228
  14. THEOPHYLLINE ANHYDROUS [Concomitant]
     Active Substance: THEOPHYLLINE ANHYDROUS
     Dates: start: 20220113
  15. TIZANIDINE [Concomitant]
     Active Substance: TIZANIDINE
     Dates: start: 20220414
  16. TRAZODONE [Concomitant]
     Active Substance: TRAZODONE HYDROCHLORIDE
     Dates: start: 20220414

REACTIONS (6)
  - Flushing [None]
  - Chest discomfort [None]
  - Dyspnoea [None]
  - Feeling cold [None]
  - Restless legs syndrome [None]
  - Injection related reaction [None]

NARRATIVE: CASE EVENT DATE: 20220627
